FAERS Safety Report 4868861-X (Version None)
Quarter: 2005Q4

REPORT INFORMATION
  Report Type: 
  Country: None (occurrence: None)
  Receive Date: 20051223
  Receipt Date: 20051216
  Transmission Date: 20060501
  Serious: Yes (Life-Threatening)
  Sender: FDA-Public Use
  Company Number: 2005-12-0793

PATIENT
  Age: 42 Year
  Sex: Male

DRUGS (2)
  1. REBETOL [Suspect]
     Indication: HEPATITIS C
     Dosage: 600 MG BID ORAL
     Route: 048
     Dates: start: 19991021
  2. INTRON A [Suspect]
     Indication: HEPATITIS C
     Dosage: 6 MIU TIW SUBCUTANEOUS
     Route: 058
     Dates: start: 19991021

REACTIONS (3)
  - EMOTIONAL DISORDER [None]
  - HYPERTENSION [None]
  - RENAL FAILURE [None]
